FAERS Safety Report 21614516 (Version 1)
Quarter: 2022Q4

REPORT INFORMATION
  Report Type: Other
  Country: US (occurrence: None)
  Receive Date: 20221118
  Receipt Date: 20221118
  Transmission Date: 20230112
  Serious: Yes (Other)
  Sender: FDA-Public Use
  Company Number: US-Navinta LLC-000300

PATIENT
  Age: 73 Year
  Sex: Male

DRUGS (2)
  1. HYDRALAZINE [Suspect]
     Active Substance: HYDRALAZINE HYDROCHLORIDE
     Indication: Product used for unknown indication
     Dosage: 50 MG THREE TIMES DAILY
  2. ADVIL [Concomitant]
     Active Substance: IBUPROFEN
     Indication: Pyrexia

REACTIONS (3)
  - Lupus-like syndrome [Recovered/Resolved]
  - Pancytopenia [Recovered/Resolved]
  - Pleural effusion [Recovered/Resolved]
